FAERS Safety Report 7371352-8 (Version None)
Quarter: 2011Q1

REPORT INFORMATION
  Report Type: 
  Country: None (occurrence: None)
  Receive Date: 20110321
  Receipt Date: 20110321
  Transmission Date: 20110831
  Serious: Yes (Other)
  Sender: FDA-Public Use
  Company Number: None

PATIENT
  Age: 51 Year
  Sex: Female
  Weight: 61.2356 kg

DRUGS (2)
  1. CYMBALTA [Suspect]
     Indication: PANIC ATTACK
     Dosage: CAPSULE 1 DAILY PO
     Route: 048
     Dates: start: 20110228, end: 20110317
  2. CYMBALTA [Suspect]
     Indication: PAIN
     Dosage: CAPSULE 1 DAILY PO
     Route: 048
     Dates: start: 20110228, end: 20110317

REACTIONS (5)
  - DRUG INEFFECTIVE [None]
  - URINARY TRACT DISORDER [None]
  - FATIGUE [None]
  - GENERAL PHYSICAL HEALTH DETERIORATION [None]
  - SOCIAL AVOIDANT BEHAVIOUR [None]
